FAERS Safety Report 5881121-3 (Version None)
Quarter: 2008Q3

REPORT INFORMATION
  Report Type: 
  Country: None (occurrence: None)
  Receive Date: 20080912
  Receipt Date: 20080624
  Transmission Date: 20090109
  Serious: No
  Sender: FDA-Public Use
  Company Number: US-ABBOTT-08P-163-0458761-00

PATIENT
  Sex: Female
  Weight: 64.468 kg

DRUGS (4)
  1. HUMIRA [Suspect]
     Indication: PSORIASIS
     Route: 050
     Dates: start: 20080529, end: 20080529
  2. HUMIRA [Suspect]
     Dosage: INJECTED BY NURSE AT PHYSICIAN OFFICE ON BOTH DATES
     Route: 050
     Dates: start: 20080605, end: 20080605
  3. EYECAPS-VITAMINS [Concomitant]
     Indication: VITAMIN SUPPLEMENTATION
     Dosage: 2 IN THE MORNING AND 2 AT NIGHT
     Route: 048
     Dates: start: 20080605
  4. METHOTREXATE [Concomitant]
     Indication: PSORIASIS
     Dosage: 3 TABLETS 2.5 MG WEEKLY
     Route: 048

REACTIONS (9)
  - ARTHRALGIA [None]
  - BACK PAIN [None]
  - EYE PAIN [None]
  - FATIGUE [None]
  - GROIN PAIN [None]
  - HEADACHE [None]
  - HYPOAESTHESIA [None]
  - MUSCLE SPASMS [None]
  - MUSCULOSKELETAL STIFFNESS [None]
